FAERS Safety Report 9264096 (Version 3)
Quarter: 2013Q3

REPORT INFORMATION
  Report Type: Spontaneous
  Country: GB (occurrence: GB)
  Receive Date: 20130430
  Receipt Date: 20130813
  Transmission Date: 20140515
  Serious: Yes (Death, Hospitalization)
  Sender: FDA-Public Use
  Company Number: GB-B.I. PHARMACEUTICALS,INC./RIDGEFIELD-2013-UK-00968UK

PATIENT
  Age: 75 Year
  Sex: Female
  Weight: 63 kg

DRUGS (7)
  1. PRADAXA [Suspect]
     Indication: ATRIAL FIBRILLATION
     Dosage: 150 MG
     Route: 048
     Dates: start: 20120908
  2. BISOPROLOL [Concomitant]
     Indication: CARDIOMYOPATHY
     Dosage: 5 MG
     Route: 048
     Dates: start: 20121213
  3. BISOPROLOL [Concomitant]
     Indication: CARDIAC FAILURE
  4. ATORVASTATIN [Concomitant]
     Indication: BLOOD CHOLESTEROL INCREASED
     Dosage: 40 MG
     Route: 048
     Dates: start: 20120921
  5. CANDESARTAN [Concomitant]
     Indication: CARDIAC FAILURE
     Dosage: 2 MG
     Route: 048
     Dates: start: 20120420
  6. FUROSEMIDE [Concomitant]
     Indication: JOINT SWELLING
     Dosage: 40 MG
     Route: 048
     Dates: start: 20121229
  7. VENTOLIN [Concomitant]
     Route: 048

REACTIONS (4)
  - Myocardial infarction [Fatal]
  - Hypertension [Fatal]
  - Peripheral vascular disorder [Fatal]
  - Femoral artery embolism [Unknown]
